FAERS Safety Report 4956878-6 (Version None)
Quarter: 2006Q1

REPORT INFORMATION
  Report Type: 
  Country: None (occurrence: None)
  Receive Date: 20060323
  Receipt Date: 20060314
  Transmission Date: 20060701
  Serious: Yes (Other)
  Sender: FDA-Public Use
  Company Number: 163-20785-05120537

PATIENT
  Age: 65 Year
  Sex: Male

DRUGS (2)
  1. THALOMID [Suspect]
     Indication: MYELODYSPLASTIC SYNDROME
     Dosage: 300-400 MG DAILY ORAL
     Route: 048
     Dates: start: 20051018, end: 20051218
  2. COUMADIN [Concomitant]

REACTIONS (7)
  - ACUTE MYELOID LEUKAEMIA [None]
  - AGEUSIA [None]
  - ANOREXIA [None]
  - ANXIETY [None]
  - DYSPNOEA [None]
  - NERVOUSNESS [None]
  - TREMOR [None]
